FAERS Safety Report 8053050-0 (Version None)
Quarter: 2012Q1

REPORT INFORMATION
  Report Type: 
  Country: None (occurrence: None)
  Receive Date: 20120118
  Receipt Date: 20120106
  Transmission Date: 20120608
  Serious: Yes (Death)
  Sender: FDA-Public Use
  Company Number: CN-NOVOPROD-342628

PATIENT
  Sex: Male

DRUGS (1)
  1. NOVOLIN R [Suspect]
     Indication: OFF LABEL USE
     Dosage: UNK

REACTIONS (3)
  - INTENTIONAL DRUG MISUSE [None]
  - VICTIM OF HOMICIDE [None]
  - HYPOGLYCAEMIA [None]
